FAERS Safety Report 22976589 (Version 2)
Quarter: 2023Q4

REPORT INFORMATION
  Report Type: Spontaneous
  Country: JP (occurrence: JP)
  Receive Date: 20230925
  Receipt Date: 20231017
  Transmission Date: 20240110
  Serious: Yes (Other)
  Sender: FDA-Public Use
  Company Number: JP-MSD-M2023-39519

PATIENT
  Age: 98 Year
  Sex: Female

DRUGS (1)
  1. BELSOMRA [Suspect]
     Active Substance: SUVOREXANT
     Indication: Insomnia
     Dosage: UNK, HS
     Route: 048

REACTIONS (2)
  - Haemorrhage [Recovered/Resolved]
  - Pollakiuria [Recovered/Resolved]
